FAERS Safety Report 8822972 (Version 1)
Quarter: 2012Q4

REPORT INFORMATION
  Report Type: 
  Country: US (occurrence: US)
  Receive Date: 20121003
  Receipt Date: 20121003
  Transmission Date: 20130627
  Serious: Yes (Hospitalization, Other)
  Sender: FDA-Public Use
  Company Number: US-009507513-1204USA00766

PATIENT
  Age: 65 Year
  Sex: Male

DRUGS (5)
  1. JANUVIA [Suspect]
     Route: 048
  2. VICTOZA [Suspect]
     Dosage: 0.6 mg, qd
     Route: 058
  3. VICTOZA [Suspect]
     Dosage: 1.2 mg, qd
     Route: 058
  4. VICTOZA [Suspect]
     Dosage: 0.9 mg, qd
     Route: 058
  5. GLYBURIDE [Suspect]
     Route: 048

REACTIONS (10)
  - Cholelithiasis [Unknown]
  - Abdominal pain [Unknown]
  - Nausea [Unknown]
  - Drug interaction [Unknown]
  - Aspartate aminotransferase increased [Unknown]
  - Gallbladder disorder [Unknown]
  - Alanine aminotransferase increased [Unknown]
  - Hyperbilirubinaemia [Unknown]
  - Cholecystitis chronic [Unknown]
  - Blood alkaline phosphatase increased [Unknown]
